FAERS Safety Report 9708777 (Version 2)
Quarter: 2013Q4

REPORT INFORMATION
  Report Type: Spontaneous
  Country: IT (occurrence: None)
  Receive Date: 20131122
  Receipt Date: 20131129
  Transmission Date: 20140711
  Serious: Yes (Hospitalization, Other)
  Sender: FDA-Public Use
  Company Number: ADR-2013-02117

PATIENT
  Age: 17 Year
  Sex: Female

DRUGS (1)
  1. BACLOFEN [Suspect]
     Indication: DYSTONIA
     Dosage: SEE B.5

REACTIONS (17)
  - Altered state of consciousness [None]
  - Vomiting [None]
  - Agitation [None]
  - Somnolence [None]
  - Akathisia [None]
  - Coma [None]
  - Blood bilirubin increased [None]
  - Amnesia [None]
  - Headache [None]
  - Vertigo [None]
  - Conversion disorder [None]
  - Unresponsive to stimuli [None]
  - Heart rate decreased [None]
  - Pupillary reflex impaired [None]
  - Areflexia [None]
  - Electroencephalogram abnormal [None]
  - Overdose [None]
